FAERS Safety Report 18570434 (Version 8)
Quarter: 2025Q1

REPORT INFORMATION
  Report Type: Spontaneous
  Country: US (occurrence: US)
  Receive Date: 20201202
  Receipt Date: 20250311
  Transmission Date: 20250409
  Serious: Yes (Hospitalization, Other)
  Sender: PFIZER
  Company Number: US-PFIZER INC-2020473007

PATIENT
  Age: 55 Year
  Sex: Female
  Weight: 105.2 kg

DRUGS (28)
  1. BOSULIF [Suspect]
     Active Substance: BOSUTINIB MONOHYDRATE
     Indication: Chronic myeloid leukaemia
     Dosage: WITH FOOD
     Route: 048
     Dates: start: 202006
  2. BOSULIF [Suspect]
     Active Substance: BOSUTINIB MONOHYDRATE
     Dosage: ONCE DAILY
     Route: 048
     Dates: start: 20201124, end: 202212
  3. BOSULIF [Suspect]
     Active Substance: BOSUTINIB MONOHYDRATE
     Dosage: 400 MG, DAILY
     Route: 048
     Dates: start: 202101, end: 20211020
  4. BOSULIF [Suspect]
     Active Substance: BOSUTINIB MONOHYDRATE
     Dosage: TAKE 1 TABLET DAILY WITH FOOD. SEPARATE ANTACIDS AND H2-BLOCKERS BY 2 HOURS.
     Route: 048
  5. ACETAMINOPHEN\ASPIRIN\CAFFEINE\SALICYLAMIDE [Concomitant]
     Active Substance: ACETAMINOPHEN\ASPIRIN\CAFFEINE\SALICYLAMIDE
  6. ZOFRAN [Concomitant]
     Active Substance: ONDANSETRON HYDROCHLORIDE
  7. BAYER BACK AND BODY EXTRA STRENGTH [Concomitant]
     Active Substance: ASPIRIN\CAFFEINE
  8. OMEPRAZOLE [Concomitant]
     Active Substance: OMEPRAZOLE
  9. PROPRANOLOL [Concomitant]
     Active Substance: PROPRANOLOL HYDROCHLORIDE
  10. ROSUVASTATIN [Concomitant]
     Active Substance: ROSUVASTATIN
  11. VITAMIN C [Concomitant]
     Active Substance: ASCORBIC ACID
  12. ASPIRIN [Concomitant]
     Active Substance: ASPIRIN
  13. GABAPENTIN [Concomitant]
     Active Substance: GABAPENTIN
  14. POTASSIUM [Concomitant]
     Active Substance: POTASSIUM
  15. VITAMIN D2 [Concomitant]
     Active Substance: ERGOCALCIFEROL
  16. ELIQUIS [Concomitant]
     Active Substance: APIXABAN
  17. ACETAZOLAMIDE [Concomitant]
     Active Substance: ACETAZOLAMIDE
  18. BUMETANIDE [Concomitant]
     Active Substance: BUMETANIDE
  19. ALBUTEROL [Concomitant]
     Active Substance: ALBUTEROL
  20. BUSPIRONE [Concomitant]
     Active Substance: BUSPIRONE HYDROCHLORIDE
  21. IRON [Concomitant]
     Active Substance: IRON
  22. FUROSEMIDE [Concomitant]
     Active Substance: FUROSEMIDE
  23. LANSOPRAZOLE [Concomitant]
     Active Substance: LANSOPRAZOLE
  24. SPIRONOLACTONE [Concomitant]
     Active Substance: SPIRONOLACTONE
  25. SYMBICORT [Concomitant]
     Active Substance: BUDESONIDE\FORMOTEROL FUMARATE DIHYDRATE
  26. VENLAFAXINE [Concomitant]
     Active Substance: VENLAFAXINE HYDROCHLORIDE
  27. ONDANSETRON [Concomitant]
     Active Substance: ONDANSETRON
  28. CHOLECALCIFEROL [Concomitant]
     Active Substance: CHOLECALCIFEROL

REACTIONS (11)
  - Chronic obstructive pulmonary disease [Recovering/Resolving]
  - Cardiac failure congestive [Recovering/Resolving]
  - Near death experience [Recovering/Resolving]
  - Hallucination [Recovering/Resolving]
  - Pancytopenia [Recovered/Resolved]
  - Diarrhoea [Recovered/Resolved]
  - Nausea [Recovered/Resolved]
  - Abdominal discomfort [Unknown]
  - Muscle twitching [Recovering/Resolving]
  - Abdominal pain [Unknown]
  - Vomiting [Recovered/Resolved]

NARRATIVE: CASE EVENT DATE: 20201127
